FAERS Safety Report 16766254 (Version 2)
Quarter: 2019Q4

REPORT INFORMATION
  Report Type: Spontaneous
  Country: US (occurrence: US)
  Receive Date: 20190903
  Receipt Date: 20191206
  Transmission Date: 20200122
  Serious: Yes (Hospitalization, Other)
  Sender: FDA-Public Use
  Company Number: US-GW PHARMA-201908USGW3114

PATIENT

DRUGS (13)
  1. FOLIC ACID. [Concomitant]
     Active Substance: FOLIC ACID
     Indication: PRODUCT USED FOR UNKNOWN INDICATION
     Dosage: UNK (1 MG)
     Route: 065
  2. EPIDIOLEX [Suspect]
     Active Substance: CANNABIDIOL
     Indication: LENNOX-GASTAUT SYNDROME
     Dosage: 9.58 MG/KG/DAY (200 MILLIGRAM, BID)
     Route: 048
     Dates: start: 20190604, end: 2019
  3. EPIDIOLEX [Suspect]
     Active Substance: CANNABIDIOL
     Indication: EPILEPSY
     Dosage: 4.79 MG/KG/DAY (100 MILLIGRAM, BID)
     Route: 048
     Dates: start: 2019, end: 2019
  4. DEPAKOTE [Concomitant]
     Active Substance: DIVALPROEX SODIUM
     Indication: PRODUCT USED FOR UNKNOWN INDICATION
     Dosage: 125 MILLIGRAM, TID (1 TAB)
     Route: 065
  5. RISPERDAL [Concomitant]
     Active Substance: RISPERIDONE
     Indication: PRODUCT USED FOR UNKNOWN INDICATION
     Dosage: 1 MILLIGRAM, TID
     Route: 065
  6. CLONIDINE. [Concomitant]
     Active Substance: CLONIDINE
     Indication: PRODUCT USED FOR UNKNOWN INDICATION
     Dosage: 0.1 MILLIGRAM, TID (1 TAB 3X A DAY)
     Route: 065
  7. ONFI [Suspect]
     Active Substance: CLOBAZAM
     Indication: PRODUCT USED FOR UNKNOWN INDICATION
     Dosage: 35 MILLIGRAM, QD (1 IN THE MORNING, 1 AT MIDDAY, 1 1/2 AT NIGHT)
     Route: 065
     Dates: end: 201910
  8. STRATTERA [Concomitant]
     Active Substance: ATOMOXETINE HYDROCHLORIDE
     Indication: PRODUCT USED FOR UNKNOWN INDICATION
     Dosage: UNK
     Route: 065
  9. EPIDIOLEX [Suspect]
     Active Substance: CANNABIDIOL
     Dosage: 10.54 MG/KG/DAY (220 MILLIGRAM, BID)
     Route: 048
     Dates: start: 2019, end: 20190911
  10. EPIDIOLEX [Suspect]
     Active Substance: CANNABIDIOL
     Dosage: 613.95 MG/KG/DAY (13200 MILLIGRAM, BID)
     Route: 048
     Dates: start: 20190912
  11. ONFI [Suspect]
     Active Substance: CLOBAZAM
     Dosage: 25 MILLIGRAM, QD (1/2 IN THE MORNING, 1/2 AT MIDDAY, 1 1/2 AT NIGHT)
     Route: 065
     Dates: start: 201910
  12. CONCERTA [Concomitant]
     Active Substance: METHYLPHENIDATE HYDROCHLORIDE
     Indication: PRODUCT USED FOR UNKNOWN INDICATION
     Dosage: UNK
     Route: 065
  13. CYCLOBENZAPRINE HCL [Concomitant]
     Active Substance: CYCLOBENZAPRINE HYDROCHLORIDE
     Indication: DYSTONIA
     Dosage: 10 MG AS NEEDED
     Route: 065
     Dates: start: 20190912

REACTIONS (13)
  - Gait disturbance [Unknown]
  - Abdominal pain [Unknown]
  - Sedation complication [Recovering/Resolving]
  - Joint swelling [Unknown]
  - Balance disorder [Unknown]
  - Dehydration [Unknown]
  - Weight decreased [Unknown]
  - Constipation [Recovering/Resolving]
  - Hypersomnia [Unknown]
  - Fall [Recovering/Resolving]
  - Failure to thrive [Unknown]
  - Decreased appetite [Not Recovered/Not Resolved]
  - Dystonia [Not Recovered/Not Resolved]

NARRATIVE: CASE EVENT DATE: 2019
